FAERS Safety Report 18402444 (Version 2)
Quarter: 2021Q3

REPORT INFORMATION
  Report Type: Other
  Country: CA (occurrence: CA)
  Receive Date: 20201020
  Receipt Date: 20210802
  Transmission Date: 20211014
  Serious: Yes (Other)
  Sender: FDA-Public Use
  Company Number: CA-CELLTRION INC.-2020CA028915

PATIENT

DRUGS (12)
  1. SEPTRA [Concomitant]
     Active Substance: SULFAMETHOXAZOLE\TRIMETHOPRIM
     Indication: PROPHYLAXIS
     Dosage: 3 EVERY 1 WEEKS
     Route: 065
  2. RITUXIMAB (UNKNOWN) [Suspect]
     Active Substance: RITUXIMAB
     Indication: VASCULITIS
     Dosage: 1000 MILLIGRAM
     Route: 042
  3. FERROUS FUMARATE [Concomitant]
     Active Substance: FERROUS FUMARATE
  4. GLICLAZIDE [Concomitant]
     Active Substance: GLICLAZIDE
  5. RITUXIMAB (UNKNOWN) [Suspect]
     Active Substance: RITUXIMAB
     Indication: MICROSCOPIC POLYANGIITIS
     Dosage: 500 MILLIGRAM, 1 EVERY 6 MONTHS
     Route: 042
  6. CLONAZEPAM. [Concomitant]
     Active Substance: CLONAZEPAM
  7. METFORMIN [Concomitant]
     Active Substance: METFORMIN HYDROCHLORIDE
     Route: 065
  8. SALBUTAMOL [Concomitant]
     Active Substance: ALBUTEROL
  9. ROSUVASTATIN. [Concomitant]
     Active Substance: ROSUVASTATIN
     Route: 058
  10. SOLIFENACIN [Concomitant]
     Active Substance: SOLIFENACIN
  11. ACETAMINOPHEN;OXYCODONE HYDROCHLORIDE [Concomitant]
     Active Substance: ACETAMINOPHEN\OXYCODONE HYDROCHLORIDE
  12. SPIRIVA [Concomitant]
     Active Substance: TIOTROPIUM BROMIDE MONOHYDRATE
     Route: 065

REACTIONS (24)
  - Anxiety [Unknown]
  - Interstitial lung disease [Unknown]
  - Weight decreased [Unknown]
  - Cough [Unknown]
  - Vomiting [Unknown]
  - Intentional product misuse [Unknown]
  - Haemoptysis [Unknown]
  - Mental disorder [Unknown]
  - Nasal congestion [Unknown]
  - Alanine aminotransferase increased [Unknown]
  - Diarrhoea [Unknown]
  - Headache [Unknown]
  - Clubbing [Unknown]
  - Dyspnoea exertional [Unknown]
  - Off label use [Unknown]
  - Asthma [Unknown]
  - Blood pressure systolic increased [Unknown]
  - Drug dependence [Unknown]
  - Hypoxia [Unknown]
  - Lung disorder [Unknown]
  - Post-traumatic stress disorder [Unknown]
  - Schizoaffective disorder [Unknown]
  - Cushingoid [Unknown]
  - Pyrexia [Unknown]
